FAERS Safety Report 7659320-X (Version None)
Quarter: 2011Q3

REPORT INFORMATION
  Report Type: 
  Country: None (occurrence: None)
  Receive Date: 20110805
  Receipt Date: 20110725
  Transmission Date: 20111222
  Serious: Yes (Other)
  Sender: FDA-Public Use
  Company Number: US-ROCHE-794312

PATIENT
  Age: 75 Year
  Sex: Female

DRUGS (3)
  1. TEMSIROLIMUS [Suspect]
     Route: 065
  2. BEVACIZUMAB [Suspect]
     Route: 065
  3. DOXORUBICIN HYDROCHLORIDE [Suspect]
     Route: 065

REACTIONS (2)
  - FATIGUE [None]
  - DEPRESSION [None]
